FAERS Safety Report 4454559-9 (Version None)
Quarter: 2004Q3

REPORT INFORMATION
  Report Type: 
  Country: None (occurrence: None)
  Receive Date: 20040921
  Receipt Date: 20040910
  Transmission Date: 20050211
  Serious: Yes (Death)
  Sender: FDA-Public Use
  Company Number: JP-JNJFOC-20040705684

PATIENT
  Sex: Male

DRUGS (11)
  1. FENTANYL [Suspect]
     Route: 062
     Dates: start: 20031030, end: 20031110
  2. FENTANYL [Suspect]
     Route: 062
     Dates: start: 20031030, end: 20031110
  3. FENTANYL [Suspect]
     Indication: CANCER PAIN
     Route: 062
     Dates: start: 20031030, end: 20031110
  4. MORPHINE HYDROCHLORIDE [Concomitant]
     Dosage: 20-40 MG PER DAY AS NEEDED, IV
     Route: 042
  5. MORPHINE HYDROCHLORIDE [Concomitant]
     Indication: CANCER PAIN
     Route: 042
  6. KETAMINE HCL [Concomitant]
     Indication: CANCER PAIN
     Route: 042
  7. FLURBIPROFEN AXETIL [Concomitant]
     Indication: CANCER PAIN
     Route: 042
  8. GLUCOSE RINGERS SOLUTION [Concomitant]
     Route: 042
  9. OCTREOTIDE ACETATE [Concomitant]
     Indication: VOMITING
     Route: 042
  10. OCTREOTIDE ACETATE [Concomitant]
     Indication: NAUSEA
     Route: 042
  11. OCTREOTIDE ACETATE [Concomitant]
     Indication: CONSTIPATION
     Route: 042

REACTIONS (1)
  - MALIGNANT NEOPLASM PROGRESSION [None]
